FAERS Safety Report 23054739 (Version 1)
Quarter: 2023Q4

REPORT INFORMATION
  Report Type: Spontaneous
  Country: US (occurrence: None)
  Receive Date: 20231010
  Receipt Date: 20231010
  Transmission Date: 20240110
  Serious: Yes (Hospitalization)
  Sender: FDA-Public Use
  Company Number: None

PATIENT
  Age: 60 Year
  Sex: Female
  Weight: 54.4 kg

DRUGS (22)
  1. DUPIXENT [Suspect]
     Active Substance: DUPILUMAB
     Indication: Asthma
     Dosage: FREQUENCY : EVERY OTHER WEEK;?
     Route: 058
     Dates: start: 20211025
  2. ORENCIA [Concomitant]
     Active Substance: ABATACEPT
  3. BUSPIRONE HYDROCHLORIDE [Concomitant]
     Active Substance: BUSPIRONE HYDROCHLORIDE
  4. VITAMIN B12 [Concomitant]
     Active Substance: CYANOCOBALAMIN
  5. VITAMIN C [Concomitant]
     Active Substance: ASCORBIC ACID
  6. ZOLPIDEM [Concomitant]
     Active Substance: ZOLPIDEM TARTRATE
  7. FOLIC ACID [Concomitant]
     Active Substance: FOLIC ACID
  8. ALBUTEROL [Concomitant]
     Active Substance: ALBUTEROL
  9. AMLODIPINE [Concomitant]
     Active Substance: AMLODIPINE BESYLATE
  10. CALCIUM [Concomitant]
     Active Substance: CALCIUM
  11. DOXYCYCLINE [Concomitant]
     Active Substance: DOXYCYCLINE
  12. DULOXETINE [Concomitant]
     Active Substance: DULOXETINE
  13. FASENRA [Concomitant]
     Active Substance: BENRALIZUMAB
  14. FLONASE [Concomitant]
     Active Substance: FLUTICASONE PROPIONATE
  15. FUROSEMIDE [Concomitant]
     Active Substance: FUROSEMIDE
  16. LEVOTHYROXINE [Concomitant]
     Active Substance: LEVOTHYROXINE
  17. LORAZEPAM [Concomitant]
     Active Substance: LORAZEPAM
  18. LYRICA [Concomitant]
     Active Substance: PREGABALIN
  19. ONDANSETRON [Concomitant]
     Active Substance: ONDANSETRON
  20. PANTOPRAZOLE SODIUM [Concomitant]
     Active Substance: PANTOPRAZOLE SODIUM
  21. potassium cit 540mg [Concomitant]
  22. SINGULAIR [Concomitant]
     Active Substance: MONTELUKAST SODIUM

REACTIONS (1)
  - Asthma [None]

NARRATIVE: CASE EVENT DATE: 20231003
